FAERS Safety Report 14272161 (Version 1)
Quarter: 2017Q4

REPORT INFORMATION
  Report Type: Not Available
  Country: US (occurrence: US)
  Receive Date: 20171211
  Receipt Date: 20171211
  Transmission Date: 20180321
  Serious: Yes (Other)
  Sender: FDA-Public Use
  Company Number: US-FOUNDATIONCONSUMERHC-2017-US-014541

PATIENT
  Age: 30 Year
  Sex: Female
  Weight: 97.52 kg

DRUGS (1)
  1. PLAN B ONE-STEP [Suspect]
     Active Substance: LEVONORGESTREL
     Dosage: 1 TABLET ONCE
     Route: 048
     Dates: start: 2015

REACTIONS (3)
  - Pregnancy after post coital contraception [Unknown]
  - Abortion spontaneous [Unknown]
  - Drug ineffective [Unknown]

NARRATIVE: CASE EVENT DATE: 2015
